FAERS Safety Report 4393153-5 (Version None)
Quarter: 2004Q3

REPORT INFORMATION
  Report Type: 
  Country: None (occurrence: None)
  Receive Date: 20040702
  Receipt Date: 20040625
  Transmission Date: 20050211
  Serious: Yes (Other)
  Sender: FDA-Public Use
  Company Number: 2004-06-1925

PATIENT
  Age: 34 Year
  Sex: Male

DRUGS (1)
  1. DIPROSPAN (BETAMETHASONE SODIUM PHOSPHATE/DIPROPIONATE) INJECTABLE SUS [Suspect]
     Indication: ALOPECIA
     Dosage: 1 UNIT INTRAMUSCULAR
     Route: 030
     Dates: start: 20040103, end: 20040318

REACTIONS (1)
  - HYPOTHYROIDISM [None]
